FAERS Safety Report 4318321-X (Version None)
Quarter: 2004Q1

REPORT INFORMATION
  Report Type: 
  Country: None (occurrence: None)
  Receive Date: 20040317
  Receipt Date: 20020618
  Transmission Date: 20041129
  Serious: Yes (Disabling)
  Sender: FDA-Public Use
  Company Number: WAES 0206USA01840

PATIENT
  Sex: Female

DRUGS (3)
  1. FOSAMAX [Concomitant]
     Route: 048
     Dates: end: 20030101
  2. ZOCOR [Suspect]
     Indication: HYPERLIPIDAEMIA
     Route: 048
     Dates: start: 20020101, end: 20030101
  3. ZOCOR [Suspect]
     Indication: BLOOD CHOLESTEROL INCREASED
     Route: 048
     Dates: start: 20020101, end: 20030101

REACTIONS (4)
  - CHEST PAIN [None]
  - HEPATIC ENZYME INCREASED [None]
  - MUSCLE CRAMP [None]
  - PAIN IN EXTREMITY [None]
